FAERS Safety Report 5915330-1 (Version None)
Quarter: 2008Q4

REPORT INFORMATION
  Report Type: 
  Country: None (occurrence: None)
  Receive Date: 20081010
  Receipt Date: 20081007
  Transmission Date: 20090506
  Serious: Yes (Hospitalization)
  Sender: FDA-Public Use
  Company Number: FR-EISAI MEDICAL RESEARCH-E2020-03498-SPO-FR

PATIENT
  Age: 86 Year
  Sex: Female

DRUGS (1)
  1. ARICEPT [Suspect]
     Indication: DRUG USE FOR UNKNOWN INDICATION
     Route: 048

REACTIONS (1)
  - BRONCHIAL OBSTRUCTION [None]
